FAERS Safety Report 7525028-4 (Version None)
Quarter: 2011Q2

REPORT INFORMATION
  Report Type: 
  Country: None (occurrence: None)
  Receive Date: 20110526
  Receipt Date: 20110519
  Transmission Date: 20111010
  Serious: Yes (Hospitalization, Other)
  Sender: FDA-Public Use
  Company Number: 2011AC000111

PATIENT
  Age: 82 Year
  Sex: Male

DRUGS (17)
  1. ASPIRIN [Concomitant]
  2. VITAMIN K TAB [Concomitant]
  3. ALDACTONE [Concomitant]
  4. NITROGLYCERIN [Concomitant]
  5. DIGOXIN [Suspect]
     Dosage: 0.250 MG, QD, PO
     Route: 048
     Dates: start: 20080221, end: 20080423
  6. LISINOPRIL [Concomitant]
  7. ATROPINE [Concomitant]
  8. AMIODARONE HCL [Concomitant]
  9. SIMVASTATIN [Concomitant]
  10. DIGIBIND [Concomitant]
  11. RANITIDINE [Concomitant]
  12. WARFARIN SODIUM [Concomitant]
  13. FUROSEMIDE [Concomitant]
  14. TOPROL-XL [Concomitant]
  15. ISOSORBIDE [Concomitant]
  16. LORATADINE [Concomitant]
  17. ALBUTEROL SULFATE AUTOHALER [Concomitant]

REACTIONS (20)
  - FAMILY STRESS [None]
  - CARDIAC FAILURE CONGESTIVE [None]
  - SOMNOLENCE [None]
  - COAGULOPATHY [None]
  - ECONOMIC PROBLEM [None]
  - HYPOTENSION [None]
  - DIZZINESS [None]
  - RENAL FAILURE [None]
  - TOXICITY TO VARIOUS AGENTS [None]
  - PROCEDURAL COMPLICATION [None]
  - ELECTROCARDIOGRAM ST SEGMENT DEPRESSION [None]
  - RECTAL HAEMORRHAGE [None]
  - BRADYCARDIA [None]
  - LEFT VENTRICULAR HYPERTROPHY [None]
  - INJURY [None]
  - FATIGUE [None]
  - DECREASED APPETITE [None]
  - ELECTROCARDIOGRAM T WAVE ABNORMAL [None]
  - RESPIRATORY FAILURE [None]
  - DYSPNOEA [None]
